FAERS Safety Report 7610937-8 (Version None)
Quarter: 2011Q3

REPORT INFORMATION
  Report Type: 
  Country: None (occurrence: None)
  Receive Date: 20110715
  Receipt Date: 20110708
  Transmission Date: 20111222
  Serious: Yes (Death, Other)
  Sender: FDA-Public Use
  Company Number: PHHY2011JP45556

PATIENT
  Sex: Female

DRUGS (4)
  1. RISEDRONATE SODIUM [Concomitant]
  2. PREDNISOLONE [Concomitant]
     Dosage: UNK
     Dates: start: 20100201
  3. ZOMETA [Suspect]
     Indication: METASTASES TO BONE
     Dates: start: 20060101
  4. AREDIA [Concomitant]
     Dosage: UNK
     Route: 041
     Dates: start: 20050201

REACTIONS (5)
  - EXPOSED BONE IN JAW [None]
  - IMPLANT SITE INFLAMMATION [None]
  - PAIN [None]
  - OSTEONECROSIS OF JAW [None]
  - ORAL DISORDER [None]
